FAERS Safety Report 7517684-1 (Version None)
Quarter: 2011Q2

REPORT INFORMATION
  Report Type: 
  Country: None (occurrence: None)
  Receive Date: 20110602
  Receipt Date: 20110523
  Transmission Date: 20111010
  Serious: Yes (Hospitalization)
  Sender: FDA-Public Use
  Company Number: US-BIOGENIDEC-2011BI010522

PATIENT
  Age: 52 Year
  Sex: Male
  Weight: 77 kg

DRUGS (8)
  1. AVONEX [Suspect]
     Indication: MULTIPLE SCLEROSIS
     Route: 030
     Dates: start: 19970401, end: 20020429
  2. LEXAPRO [Concomitant]
  3. OMEPRAZOLE [Concomitant]
  4. AVONEX [Suspect]
     Route: 030
     Dates: start: 20030401
  5. LAMICTAL [Concomitant]
  6. LEVITRA [Concomitant]
  7. DOXYCYCLINE [Concomitant]
  8. ZOLPIDEM [Concomitant]

REACTIONS (1)
  - TRIGEMINAL NEURALGIA [None]
